FAERS Safety Report 18472985 (Version 1)
Quarter: 2020Q4

REPORT INFORMATION
  Report Type: Spontaneous
  Country: US (occurrence: US)
  Receive Date: 20201105
  Receipt Date: 20201105
  Transmission Date: 20210114
  Serious: Yes (Life-Threatening, Disabling)
  Sender: FDA-Public Use
  Company Number: None

PATIENT
  Age: 12 Year
  Sex: Female
  Weight: 36 kg

DRUGS (11)
  1. CREON ENZYMES [Concomitant]
  2. SYMBICORT [Concomitant]
     Active Substance: BUDESONIDE\FORMOTEROL FUMARATE DIHYDRATE
  3. PREVACID [Concomitant]
     Active Substance: LANSOPRAZOLE
  4. TRIKAFTA [Suspect]
     Active Substance: ELEXACAFTOR\IVACAFTOR\TEZACAFTOR
     Indication: CYSTIC FIBROSIS
     Route: 048
     Dates: start: 20201001, end: 20201031
  5. MIRALAX [Concomitant]
     Active Substance: POLYETHYLENE GLYCOL 3350
  6. GENERIC ALLERGY PILL (KIRKLAND) [Concomitant]
  7. PULMOZYME [Concomitant]
     Active Substance: DORNASE ALFA
  8. ORKAMBI [Concomitant]
     Active Substance: IVACAFTOR\LUMACAFTOR
  9. AZITHROMYCIN ANHYDROUS. [Concomitant]
     Active Substance: AZITHROMYCIN ANHYDROUS
  10. NEBULIZER SALINE SOLUTION [Concomitant]
  11. ALBUTEROL INHALER [Concomitant]
     Active Substance: ALBUTEROL

REACTIONS (8)
  - Cough [None]
  - Abdominal pain [None]
  - Suicidal ideation [None]
  - Anxiety [None]
  - Headache [None]
  - Pruritus [None]
  - Depression [None]
  - Rash [None]

NARRATIVE: CASE EVENT DATE: 20201001
